FAERS Safety Report 10519059 (Version 1)
Quarter: 2014Q4

REPORT INFORMATION
  Report Type: Spontaneous
  Country: US (occurrence: None)
  Receive Date: 20141014
  Receipt Date: 20141014
  Transmission Date: 20150528
  Serious: Yes (Other)
  Sender: FDA-Public Use
  Company Number: None

PATIENT
  Age: 80 Year
  Sex: Female
  Weight: 48.08 kg

DRUGS (1)
  1. TRAMADOL 50 MG [Suspect]
     Active Substance: TRAMADOL
     Indication: TOOTHACHE
     Dosage: 1 TABLET TID ORAL
     Route: 048
     Dates: start: 20141002, end: 20141009

REACTIONS (1)
  - International normalised ratio increased [None]

NARRATIVE: CASE EVENT DATE: 20141009
